FAERS Safety Report 6876376-2 (Version None)
Quarter: 2010Q3

REPORT INFORMATION
  Report Type: 
  Country: None (occurrence: None)
  Receive Date: 20100727
  Receipt Date: 20100709
  Transmission Date: 20110219
  Serious: Yes (Life-Threatening, Hospitalization)
  Sender: FDA-Public Use
  Company Number: CA-BAYER-201024424NA

PATIENT
  Age: 36 Year
  Sex: Female
  Weight: 122 kg

DRUGS (23)
  1. AVELOX [Suspect]
     Indication: PNEUMONIA
     Dosage: UNIT DOSE: 400 MG
     Route: 042
     Dates: start: 20091108, end: 20091113
  2. ABENOL [Concomitant]
     Dosage: UNIT DOSE: 650 MG
     Route: 054
  3. ASPIRIN [Concomitant]
     Dosage: UNIT DOSE: 325 MG
  4. ATROVENT [Concomitant]
     Dosage: UNIT DOSE: 20 ?G
     Route: 055
  5. DOBUTAMINE HCL [Concomitant]
     Dosage: UNIT DOSE: 250 MG
     Route: 042
  6. FENTANYL [Concomitant]
     Dosage: 2500MG/250ML NS IV PERFUSION
     Route: 042
  7. FLORINEF [Concomitant]
     Dosage: TOTAL DAILY DOSE: 0.1 MG  UNIT DOSE: 0.1 MG
  8. HEPARIN SODIUM [Concomitant]
     Route: 042
  9. HUMULIN R [Concomitant]
     Dosage: BY THE SCALE
     Route: 058
  10. LEVOPHED [Concomitant]
     Dosage: 8MG/250 ML D5%
     Route: 042
  11. MAXERAN [Concomitant]
     Dosage: UNIT DOSE: 10 MG
     Route: 042
  12. MERREM [Concomitant]
     Dates: start: 20091108
  13. MIDAZOLAM HCL [Concomitant]
     Route: 042
  14. PANTOPRAZOLE [Concomitant]
     Dosage: 40 MG 1000ML PERFUSION
     Route: 042
  15. ROCEPHIN [Concomitant]
     Dosage: TOTAL DAILY DOSE: 2 G  UNIT DOSE: 2 G
     Route: 042
  16. SOLU-CORTEF [Concomitant]
     Dosage: TOTAL DAILY DOSE: 400 MG  UNIT DOSE: 100 MG
     Route: 042
  17. TAMIFLU [Concomitant]
     Dates: start: 20091108, end: 20091110
  18. TAZOCIN [Concomitant]
     Dosage: UNIT DOSE: 250 G
     Route: 042
     Dates: start: 20091106, end: 20091110
  19. VANCOMYCIN [Concomitant]
     Dosage: TOTAL DAILY DOSE: 750 MG  UNIT DOSE: 750 MG
     Route: 042
     Dates: start: 20091110
  20. VENTOLIN [Concomitant]
     Dosage: 100MCG 8 INH EVERY 2-4 PRN
     Route: 055
  21. ZANTAC [Concomitant]
     Route: 042
     Dates: start: 20091108
  22. VERSED [Concomitant]
     Dosage: 2.5MG IV EVERYON
     Route: 042
  23. VERSED [Concomitant]
     Dosage: 25MG/250ML NS IV PERFUSION
     Route: 042

REACTIONS (2)
  - ALANINE AMINOTRANSFERASE INCREASED [None]
  - HEPATIC CIRRHOSIS [None]
